FAERS Safety Report 9348629 (Version 2)
Quarter: 2013Q2

REPORT INFORMATION
  Report Type: Not Available
  Country: SE (occurrence: SE)
  Receive Date: 20130614
  Receipt Date: 20130627
  Transmission Date: 20140414
  Serious: Yes (Hospitalization, Other)
  Sender: FDA-Public Use
  Company Number: SE-NAPPMUNDI-GBR-2013-0014516

PATIENT
  Sex: Female

DRUGS (2)
  1. OXYCONTIN DEPOTTABLETIT [Suspect]
     Indication: PAIN
     Dosage: UNK
     Route: 048
     Dates: start: 2013
  2. SELEXID                            /00445301/ [Concomitant]
     Indication: ESCHERICHIA BACTERAEMIA

REACTIONS (5)
  - Hypokalaemia [Unknown]
  - Dyspepsia [Unknown]
  - Constipation [Unknown]
  - Hallucination [Unknown]
  - Confusional state [Unknown]
